FAERS Safety Report 21087717 (Version 2)
Quarter: 2022Q3

REPORT INFORMATION
  Report Type: Spontaneous
  Country: CN (occurrence: CN)
  Receive Date: 20220715
  Receipt Date: 20220721
  Transmission Date: 20221027
  Serious: Yes (Other)
  Sender: FDA-Public Use
  Company Number: CN-JNJFOC-20220723983

PATIENT
  Age: 6 Year
  Sex: Female

DRUGS (2)
  1. RHINOCORT AQUA [Suspect]
     Active Substance: BUDESONIDE
     Indication: Rhinitis
     Dosage: LOT: VBBR, REPACK LOT: 2112089
     Route: 065
     Dates: start: 202207, end: 202207
  2. CETIRIZINE [Suspect]
     Active Substance: CETIRIZINE HYDROCHLORIDE
     Indication: Hypersensitivity
     Route: 065

REACTIONS (4)
  - Measles [Unknown]
  - Oedema [Unknown]
  - Erythema [Unknown]
  - Pruritus [Not Recovered/Not Resolved]

NARRATIVE: CASE EVENT DATE: 20220701
